FAERS Safety Report 23081520 (Version 3)
Quarter: 2023Q4

REPORT INFORMATION
  Report Type: Spontaneous
  Country: GB (occurrence: GB)
  Receive Date: 20231019
  Receipt Date: 20231103
  Transmission Date: 20240110
  Serious: Yes (Life-Threatening, Hospitalization, Disabling, Other)
  Sender: FDA-Public Use
  Company Number: None

PATIENT
  Age: 36 Year
  Sex: Male

DRUGS (2)
  1. RINVOQ [Suspect]
     Active Substance: UPADACITINIB
     Indication: Adverse drug reaction
     Route: 048
     Dates: start: 20230306, end: 20231015
  2. OMEPRAZOLE [Concomitant]
     Active Substance: OMEPRAZOLE
     Indication: Reflux gastritis

REACTIONS (2)
  - Diverticular perforation [Recovering/Resolving]
  - Diverticulum [Unknown]

NARRATIVE: CASE EVENT DATE: 20230101
